FAERS Safety Report 6161980-X (Version None)
Quarter: 2009Q2

REPORT INFORMATION
  Report Type: 
  Country: None (occurrence: None)
  Receive Date: 20090417
  Receipt Date: 20090406
  Transmission Date: 20091009
  Serious: No
  Sender: FDA-Public Use
  Company Number: 239397

PATIENT
  Age: 61 Year
  Sex: Female

DRUGS (1)
  1. CARBOPLATIN [Suspect]
     Dosage: 605 MG, INTRAVENOUS
     Route: 042
     Dates: start: 20090217

REACTIONS (6)
  - APNOEA [None]
  - BURNING SENSATION [None]
  - DYSPNOEA [None]
  - HYPERSENSITIVITY [None]
  - TACHYCARDIA [None]
  - UNRESPONSIVE TO STIMULI [None]
